FAERS Safety Report 4558296-1 (Version None)
Quarter: 2005Q1

REPORT INFORMATION
  Report Type: 
  Country: None (occurrence: None)
  Receive Date: 20050121
  Receipt Date: 20050111
  Transmission Date: 20050727
  Serious: Yes (Hospitalization)
  Sender: FDA-Public Use
  Company Number: GB-JNJFOC-20050103982

PATIENT
  Age: 77 Year
  Sex: Male

DRUGS (7)
  1. IBUPROFEN [Suspect]
     Indication: OSTEOARTHRITIS
     Route: 049
  2. ASPIRIN [Suspect]
     Indication: ANGINA PECTORIS
     Route: 049
  3. SIMVASTATIN [Concomitant]
     Route: 049
  4. RANITIDINE [Concomitant]
     Route: 049
  5. AVANDAMET [Concomitant]
     Dosage: 7/500 MG, 2 TABLETS, TWICE A DAY
     Route: 049
  6. NITROGLYCERIN [Concomitant]
     Route: 060
  7. DILTIAZEM [Concomitant]
     Route: 049

REACTIONS (7)
  - CHEST PAIN [None]
  - DIZZINESS [None]
  - EROSIVE DUODENITIS [None]
  - GASTRIC ULCER [None]
  - GASTRITIS [None]
  - GASTRITIS EROSIVE [None]
  - HAEMOGLOBIN DECREASED [None]
